FAERS Safety Report 4331252-4 (Version None)
Quarter: 2004Q1

REPORT INFORMATION
  Report Type: 
  Country: None (occurrence: None)
  Receive Date: 20040331
  Receipt Date: 20040318
  Transmission Date: 20041129
  Serious: Yes (Hospitalization)
  Sender: FDA-Public Use
  Company Number: 2004018690

PATIENT
  Age: 9 Year
  Sex: Female

DRUGS (1)
  1. HYDROXYZINE HCL [Suspect]
     Indication: PRURITUS

REACTIONS (6)
  - CHEST DISCOMFORT [None]
  - HYPERHIDROSIS [None]
  - PALPITATIONS [None]
  - PERIPHERAL COLDNESS [None]
  - PULSE ABNORMAL [None]
  - SUPRAVENTRICULAR TACHYCARDIA [None]
